FAERS Safety Report 5930737-4 (Version None)
Quarter: 2008Q4

REPORT INFORMATION
  Report Type: 
  Country: None (occurrence: None)
  Receive Date: 20081027
  Receipt Date: 20081022
  Transmission Date: 20090506
  Serious: Yes (Disabling)
  Sender: FDA-Public Use
  Company Number: US-BAYER-200815628NA

PATIENT
  Sex: Female

DRUGS (1)
  1. CLIMARA [Suspect]
     Indication: HORMONE REPLACEMENT THERAPY
     Route: 062

REACTIONS (9)
  - BLOOD OESTROGEN DECREASED [None]
  - DEVICE FAILURE [None]
  - DISABILITY [None]
  - DRUG HYPERSENSITIVITY [None]
  - DRUG WITHDRAWAL SYNDROME [None]
  - HOT FLUSH [None]
  - MENOPAUSAL SYMPTOMS [None]
  - NIGHT SWEATS [None]
  - PRODUCT QUALITY ISSUE [None]
